FAERS Safety Report 20542662 (Version 1)
Quarter: 2022Q1

REPORT INFORMATION
  Report Type: Spontaneous
  Country: US (occurrence: US)
  Receive Date: 20220302
  Receipt Date: 20220302
  Transmission Date: 20220423
  Serious: Yes (Other)
  Sender: FDA-Public Use
  Company Number: US-TEVA-2022-US-2005681

PATIENT
  Age: 46 Year
  Sex: Female

DRUGS (1)
  1. MUPIROCIN [Suspect]
     Active Substance: MUPIROCIN
     Indication: Nasal injury
     Route: 045
     Dates: start: 20210916, end: 2021

REACTIONS (19)
  - Neuropathy peripheral [Unknown]
  - Adverse event [Unknown]
  - Illness [Not Recovered/Not Resolved]
  - Feeling abnormal [Unknown]
  - Facial discomfort [Unknown]
  - Upper-airway cough syndrome [Unknown]
  - Electric shock sensation [Unknown]
  - Electrocution [Unknown]
  - General physical health deterioration [Unknown]
  - Lymphoedema [Unknown]
  - Nervous system disorder [Unknown]
  - Nasal inflammation [Unknown]
  - Vitreous floaters [Unknown]
  - Vision blurred [Unknown]
  - Dizziness [Unknown]
  - Hypoaesthesia oral [Not Recovered/Not Resolved]
  - Head discomfort [Recovered/Resolved]
  - Seroma [Unknown]
  - Product use issue [Unknown]

NARRATIVE: CASE EVENT DATE: 20210101
